APPROVED DRUG PRODUCT: ISIBLOOM
Active Ingredient: DESOGESTREL; ETHINYL ESTRADIOL
Strength: 0.15MG;0.03MG
Dosage Form/Route: TABLET;ORAL-28
Application: A202789 | Product #001 | TE Code: AB
Applicant: XIROMED PHARMA ESPANA SL
Approved: Aug 12, 2015 | RLD: No | RS: No | Type: RX